FAERS Safety Report 5085528-6 (Version None)
Quarter: 2006Q3

REPORT INFORMATION
  Report Type: 
  Country: None (occurrence: None)
  Receive Date: 20060822
  Receipt Date: 20060816
  Transmission Date: 20061208
  Serious: Yes (Hospitalization)
  Sender: FDA-Public Use
  Company Number: PHEH2006US10486

PATIENT
  Age: 15 Month
  Sex: Male
  Weight: 12 kg

DRUGS (3)
  1. TRILEPTAL [Suspect]
     Indication: CONVULSION
     Dosage: 60 MG, BID
     Route: 048
     Dates: start: 20060731, end: 20060806
  2. TRILEPTAL [Suspect]
     Dosage: 120 MG, BID
     Route: 048
     Dates: start: 20060807, end: 20060814
  3. PHENOBARBITAL TAB [Suspect]
     Indication: CONVULSION
     Dosage: 30 MG, BID
     Route: 048
     Dates: start: 20060810, end: 20060814

REACTIONS (3)
  - BRAIN TUMOUR OPERATION [None]
  - OPERATIVE HAEMORRHAGE [None]
  - THROMBOCYTOPENIA [None]
